FAERS Safety Report 6449485-X (Version None)
Quarter: 2009Q4

REPORT INFORMATION
  Report Type: 
  Country: None (occurrence: None)
  Receive Date: 20091120
  Receipt Date: 20091109
  Transmission Date: 20100525
  Serious: Yes (Death)
  Sender: FDA-Public Use
  Company Number: AU-TYCO HEALTHCARE/MALLINCKRODT-T200902073

PATIENT
  Age: 52 Year
  Sex: Female

DRUGS (9)
  1. OCTREOSCAN [Suspect]
     Indication: CARCINOID TUMOUR
     Dosage: 5.3 - 7.8 GBQ VIA INFUSION PUMP OVER 20 MINUTES
     Route: 042
  2. OCTREOSCAN [Suspect]
     Dosage: 5.3 - 7.8 GBQ VIA INFUSION PUMP OVER 20 MINUTES
     Route: 042
  3. OCTREOSCAN [Suspect]
     Dosage: 5.3 - 7.8 GBQ VIA INFUSION PUMP OVER 20 MINUTES
     Route: 042
  4. 5-FLUOROURACIL                     /00098801/ [Suspect]
     Indication: CARCINOID TUMOUR
     Dosage: 200 MG/M2, QD VIA CONTINUOUS AMBULATORY IV PUMP
     Route: 042
  5. 5-FLUOROURACIL                     /00098801/ [Suspect]
     Dosage: 200 MG/M2, QD VIA CONTINUOUS AMBULATORY IV PUMP
     Route: 042
  6. 5-FLUOROURACIL                     /00098801/ [Suspect]
     Dosage: 200 MG/M2, QD VIA CONTINUOUS AMBULATORY IV PUMP
     Route: 042
  7. LUTETIUM 177 THERAPY [Suspect]
     Indication: CARCINOID TUMOUR
     Dosage: UNK
  8. LUTETIUM 177 THERAPY [Suspect]
     Dosage: UNK
  9. NORMAL SALINE [Concomitant]
     Indication: CARCINOID TUMOUR
     Route: 042

REACTIONS (4)
  - DISEASE PROGRESSION [None]
  - INTENTIONAL DRUG MISUSE [None]
  - MUCOSAL INFLAMMATION [None]
  - NAUSEA [None]
